FAERS Safety Report 23945022 (Version 1)
Quarter: 2024Q2

REPORT INFORMATION
  Report Type: Spontaneous
  Country: US (occurrence: US)
  Receive Date: 20240606
  Receipt Date: 20240606
  Transmission Date: 20240716
  Serious: Yes (Disabling)
  Sender: FDA-Public Use
  Company Number: US-BRISTOL-MYERS SQUIBB COMPANY-2024-087762

PATIENT
  Age: 86 Year
  Sex: Male
  Weight: 90.3 kg

DRUGS (3)
  1. IDHIFA [Suspect]
     Active Substance: ENASIDENIB MESYLATE
     Indication: Acute myeloid leukaemia
     Route: 048
     Dates: start: 20221122
  2. MYRBETRIQ [Concomitant]
     Active Substance: MIRABEGRON
  3. MAGNESIUM [Concomitant]
     Active Substance: MAGNESIUM
     Indication: Supplementation therapy

REACTIONS (4)
  - Somnolence [Unknown]
  - Neck pain [Unknown]
  - Muscular weakness [Unknown]
  - Product dose omission issue [Unknown]
